FAERS Safety Report 8818528 (Version 2)
Quarter: 2012Q4

REPORT INFORMATION
  Report Type: Report from Study
  Country: DE (occurrence: DE)
  Receive Date: 20121001
  Receipt Date: 20121012
  Transmission Date: 20130627
  Serious: Yes (Hospitalization)
  Sender: FDA-Public Use
  Company Number: DE-ROCHE-1131672

PATIENT
  Age: 66 Year
  Sex: Female
  Weight: 49 kg

DRUGS (13)
  1. XELODA [Suspect]
     Indication: BREAST CANCER
     Dosage: Last dose prior to SAE:15/Sep/2012
     Route: 048
     Dates: start: 20120503
  2. AVASTIN [Suspect]
     Indication: BREAST CANCER
     Dosage: Last dose prior to SAE:12/Sep/2012
     Route: 042
     Dates: start: 20120502
  3. L-THYROXIN [Concomitant]
     Dosage: 1 in morning.
     Route: 065
     Dates: start: 2002
  4. TOLPERISONE [Concomitant]
     Route: 065
     Dates: start: 2009
  5. SIMVASTATIN [Concomitant]
     Dosage: 1/2 at evening.
     Route: 065
     Dates: start: 2002
  6. NOVAMINSULFON [Concomitant]
     Dosage: 30 drops in morning, afternoon, evening.
     Route: 065
     Dates: start: 201202
  7. OMEPRAZOL [Concomitant]
     Dosage: 1in morning.
     Route: 065
     Dates: start: 201202
  8. OPIPRAMOL [Concomitant]
     Dosage: 1 in morning and 2 at evening.
     Route: 065
     Dates: start: 201202
  9. ASS [Concomitant]
     Dosage: 1 in morning.
     Route: 065
     Dates: start: 2002
  10. BISOPROLOL [Concomitant]
     Route: 065
     Dates: start: 20120620
  11. RAMIPRIL [Concomitant]
     Route: 065
     Dates: start: 20120620
  12. AMLODIPIN [Concomitant]
     Dosage: 1 at morning.
     Route: 065
     Dates: start: 20120705
  13. IBUPROFEN [Concomitant]
     Route: 065
     Dates: start: 20120613

REACTIONS (1)
  - General physical health deterioration [Recovered/Resolved]
